FAERS Safety Report 10919467 (Version 1)
Quarter: 2015Q1

REPORT INFORMATION
  Report Type: Report from Study
  Country: US (occurrence: US)
  Receive Date: 20150316
  Receipt Date: 20150316
  Transmission Date: 20150721
  Serious: Yes (Death, Hospitalization)
  Sender: FDA-Public Use
  Company Number: US-INTERMUNE, INC.-201501IM008713

PATIENT
  Age: 75 Year
  Sex: Male
  Weight: 81.72 kg

DRUGS (10)
  1. ESBRIET [Suspect]
     Active Substance: PIRFENIDONE
     Route: 048
     Dates: start: 20141216
  2. OMEPRAZOLE. [Concomitant]
     Active Substance: OMEPRAZOLE
  3. ESBRIET [Suspect]
     Active Substance: PIRFENIDONE
     Dosage: 2403 MG
     Route: 048
     Dates: start: 20150109
  4. CARVEDILOL. [Concomitant]
     Active Substance: CARVEDILOL
  5. MULTIVITAMIN [Concomitant]
     Active Substance: VITAMINS
  6. WARFARIN [Concomitant]
     Active Substance: WARFARIN
  7. ASPIRIN. [Concomitant]
     Active Substance: ASPIRIN
  8. LOSARTAN/HCTZ [Concomitant]
     Active Substance: HYDROCHLOROTHIAZIDE\LOSARTAN
  9. SIMVASTATIN. [Concomitant]
     Active Substance: SIMVASTATIN
  10. EPLERENONE. [Concomitant]
     Active Substance: EPLERENONE

REACTIONS (3)
  - Weight decreased [Unknown]
  - Idiopathic pulmonary fibrosis [Fatal]
  - Nausea [Unknown]

NARRATIVE: CASE EVENT DATE: 201412
